FAERS Safety Report 9385823 (Version 1)
Quarter: 2013Q3

REPORT INFORMATION
  Report Type: Spontaneous
  Country: SE (occurrence: SE)
  Receive Date: 20130705
  Receipt Date: 20130705
  Transmission Date: 20140515
  Serious: Yes (Hospitalization)
  Sender: FDA-Public Use
  Company Number: SE-ABBOTT-13P-150-1105710-00

PATIENT
  Age: 52 Year
  Sex: Male

DRUGS (1)
  1. HUMIRA [Suspect]
     Indication: CROHN^S DISEASE
     Dates: start: 20130508

REACTIONS (3)
  - Chordae tendinae rupture [Recovering/Resolving]
  - Cardiac failure congestive [Recovering/Resolving]
  - Heart valve incompetence [Recovering/Resolving]
